FAERS Safety Report 5857137-X (Version None)
Quarter: 2008Q3

REPORT INFORMATION
  Report Type: 
  Country: None (occurrence: None)
  Receive Date: 20080825
  Receipt Date: 20080812
  Transmission Date: 20090109
  Serious: Yes (Hospitalization, Other)
  Sender: FDA-Public Use
  Company Number: US-ELI_LILLY_AND_COMPANY-US200808002219

PATIENT
  Age: 56 Year
  Sex: Female

DRUGS (1)
  1. CYMBALTA [Suspect]
     Indication: DEPRESSION
     Dosage: 60 MG, UNK
     Dates: end: 20080801

REACTIONS (6)
  - DEHYDRATION [None]
  - DYSPHAGIA [None]
  - GASTROSTOMY TUBE INSERTION [None]
  - NAUSEA [None]
  - THROAT CANCER [None]
  - VOMITING [None]
